FAERS Safety Report 9660910 (Version 2)
Quarter: 2013Q4

REPORT INFORMATION
  Report Type: Report from Study
  Country: FI (occurrence: FI)
  Receive Date: 20131031
  Receipt Date: 20131126
  Transmission Date: 20140711
  Serious: Yes (Hospitalization)
  Sender: FDA-Public Use
  Company Number: FI-BRISTOL-MYERS SQUIBB COMPANY-19686286

PATIENT
  Age: 58 Year
  Sex: Male
  Weight: 81.1 kg

DRUGS (13)
  1. BLINDED: NIVOLUMAB [Suspect]
     Indication: METASTATIC MALIGNANT MELANOMA
     Route: 042
     Dates: start: 20130709, end: 20130829
  2. IPILIMUMAB [Suspect]
     Indication: METASTATIC MALIGNANT MELANOMA
     Route: 042
     Dates: start: 20130709, end: 20130829
  3. PLACEBO [Suspect]
     Indication: METASTATIC MALIGNANT MELANOMA
     Route: 042
     Dates: start: 20130709, end: 20130829
  4. METFORMIN [Concomitant]
     Dates: start: 201201
  5. SITAGLIPTIN PHOSPHATE [Concomitant]
     Dates: start: 201201
  6. LOSARTAN [Concomitant]
     Dates: start: 201201
  7. PANTOPRAZOLE [Concomitant]
     Dosage: 80 (UNITS NOT SPECIFIED) ON 16-OCT-2013 CONTD.
     Dates: start: 20130923
  8. DIFLUCAN [Concomitant]
     Dates: start: 20130924
  9. MYCOSTATIN [Concomitant]
     Dates: start: 20130924
  10. ATORVASTATIN [Concomitant]
     Dates: start: 20130819
  11. CEFUROXIME [Concomitant]
     Dosage: X3
     Route: 042
  12. METHYLPREDNISOLONE [Concomitant]
     Dates: start: 20131107, end: 20131107
  13. PREDNISONE [Concomitant]
     Dosage: 50 MG 16-NOV-2013
     Dates: start: 20131108

REACTIONS (3)
  - Vertigo [Recovered/Resolved with Sequelae]
  - Abdominal pain [Unknown]
  - Anaemia [Unknown]
